FAERS Safety Report 4477859-5 (Version None)
Quarter: 2004Q3

REPORT INFORMATION
  Report Type: 
  Country: None (occurrence: None)
  Receive Date: 20040923
  Receipt Date: 20040616
  Transmission Date: 20050211
  Serious: No
  Sender: FDA-Public Use
  Company Number: USA040670393

PATIENT
  Age: 65 Year
  Sex: Female

DRUGS (7)
  1. FORTEO [Suspect]
     Indication: OSTEOPOROSIS
     Dates: start: 20040601
  2. TOPROL-XL [Concomitant]
  3. ASPIRIN [Concomitant]
  4. ZETIA [Concomitant]
  5. AVAPRO [Concomitant]
  6. XANAX [Concomitant]
  7. NEXIUM [Concomitant]

REACTIONS (4)
  - FATIGUE [None]
  - MUSCLE CRAMP [None]
  - SCREAMING [None]
  - SLEEP DISORDER [None]
